FAERS Safety Report 8439030-1 (Version None)
Quarter: 2012Q2

REPORT INFORMATION
  Report Type: 
  Country: None (occurrence: None)
  Receive Date: 20120608
  Receipt Date: 20120604
  Transmission Date: 20120825
  Serious: Yes (Death, Other)
  Sender: FDA-Public Use
  Company Number: 2012133267

PATIENT
  Age: 83 Year
  Sex: Male

DRUGS (7)
  1. FRAGMIN [Suspect]
     Indication: THROMBOSIS PROPHYLAXIS
     Dosage: 5000 IU, DAILY, SUBCUTANEOUS
     Route: 058
     Dates: start: 20120130, end: 20120223
  2. LASIX [Concomitant]
  3. MORPHINE [Concomitant]
  4. NEXIUM [Concomitant]
  5. ACETAMINOPHEN [Concomitant]
  6. TRAMADOL HCL [Concomitant]
  7. PREDNISONE TAB [Concomitant]

REACTIONS (12)
  - APNOEA [None]
  - NERVOUS SYSTEM DISORDER [None]
  - HYPOTENSION [None]
  - HAEMATOMA [None]
  - HAEMORRHAGIC ANAEMIA [None]
  - HYPERAESTHESIA [None]
  - RESPIRATORY DISTRESS [None]
  - CONFUSIONAL STATE [None]
  - LUNG INFECTION [None]
  - LUNG DISORDER [None]
  - BLOOD LACTIC ACID INCREASED [None]
  - ALTERED STATE OF CONSCIOUSNESS [None]
